FAERS Safety Report 5924311-3 (Version None)
Quarter: 2008Q3

REPORT INFORMATION
  Report Type: 
  Country: None (occurrence: None)
  Receive Date: 20080909
  Receipt Date: 20080312
  Transmission Date: 20090109
  Serious: Yes (Death)
  Sender: FDA-Public Use
  Company Number: 163-20785-08020138

PATIENT
  Age: 63 Year
  Sex: Male
  Weight: 45.3597 kg

DRUGS (7)
  1. THALOMID [Suspect]
     Indication: WALDENSTROM'S MACROGLOBULINAEMIA
     Dosage: 100 MG, 1 IN 1 D, ORAL
     Route: 048
     Dates: start: 20071204, end: 20080127
  2. LASIX [Concomitant]
  3. COREG [Concomitant]
  4. ISONIAZID [Concomitant]
  5. RIFAMPICIN [Concomitant]
  6. VITAMIN B6 [Concomitant]
  7. ASPIRIN [Concomitant]

REACTIONS (2)
  - NEOPLASM PROGRESSION [None]
  - SEPSIS [None]
